FAERS Safety Report 6218224-X (Version None)
Quarter: 2009Q2

REPORT INFORMATION
  Report Type: 
  Country: None (occurrence: None)
  Receive Date: 20090608
  Receipt Date: 20090603
  Transmission Date: 20091009
  Serious: Yes (Other)
  Sender: FDA-Public Use
  Company Number: AU-AVENTIS-200915011GDDC

PATIENT
  Age: 72 Year
  Sex: Female

DRUGS (10)
  1. ARAVA [Suspect]
     Dosage: DOSE: UNK
     Dates: start: 20051115, end: 20090409
  2. PLAVIX [Suspect]
     Dosage: DOSE: UNK
  3. AVAPRO [Suspect]
     Dosage: DOSE: UNK
  4. TRAMADOL HCL [Concomitant]
     Dosage: DOSE: UNK
  5. NEXIUM [Concomitant]
     Dosage: DOSE: UNK
  6. ZOCOR [Concomitant]
     Dosage: DOSE: UNK
  7. MOBIC [Concomitant]
     Dosage: DOSE: UNK
  8. NORVASC [Concomitant]
     Dosage: DOSE: UNK
  9. PANADOL                            /00020001/ [Concomitant]
     Dosage: DOSE: UNK
  10. IBUPROFEN [Concomitant]
     Dosage: DOSE: UNK

REACTIONS (1)
  - DUODENAL ULCER HAEMORRHAGE [None]
